FAERS Safety Report 8721543 (Version 6)
Quarter: 2013Q3

REPORT INFORMATION
  Report Type: Report from Study
  Country: CA (occurrence: CA)
  Receive Date: 20120813
  Receipt Date: 20130731
  Transmission Date: 20140515
  Serious: Yes (Other)
  Sender: FDA-Public Use
  Company Number: PHHY2010CA37738

PATIENT
  Sex: Female

DRUGS (9)
  1. SANDOSTATIN LAR [Suspect]
     Indication: NEUROENDOCRINE TUMOUR
     Dosage: 30 MG EVERY 3 WEEKS
     Route: 030
     Dates: start: 20050326, end: 20061016
  2. SANDOSTATIN LAR [Suspect]
     Dosage: 30 MG, ONCE A MONTH
     Route: 030
  3. SANDOSTATIN LAR [Suspect]
     Dosage: 30 MG, EVERY 3 WEEKS
     Route: 030
  4. SANDOSTATIN LAR [Suspect]
     Dosage: 60 MG, QMO
     Route: 030
     Dates: start: 20120628
  5. SANDOSTATIN LAR [Suspect]
     Dosage: 30 MG, EVERY 3 WEEKS
     Route: 030
  6. SANDOSTATIN LAR [Suspect]
     Dosage: 60 MG, EVERY 4 WEEKS
     Route: 030
     Dates: start: 20050326
  7. SANDOSTATIN LAR [Suspect]
     Dosage: 30 MG EVERY 4 WEEKS
     Route: 030
  8. SANDOSTATIN LAR [Suspect]
     Dosage: 30 MG ONCE A MONTH
     Route: 030
  9. SANDOSTATIN LAR [Suspect]
     Dosage: 30 MG, EVERY 4 WEEKS

REACTIONS (8)
  - Adenocarcinoma [Unknown]
  - Colorectal cancer [Unknown]
  - Metastases to liver [Unknown]
  - Second primary malignancy [Unknown]
  - Blood glucose increased [Unknown]
  - Malignant neoplasm progression [Unknown]
  - Inappropriate schedule of drug administration [Unknown]
  - Blood pressure increased [Unknown]
